FAERS Safety Report 4792481-9 (Version None)
Quarter: 2005Q4

REPORT INFORMATION
  Report Type: 
  Country: None (occurrence: None)
  Receive Date: 20051010
  Receipt Date: 20050926
  Transmission Date: 20060501
  Serious: Yes (Death, Life-Threatening)
  Sender: FDA-Public Use
  Company Number: FR-GILEAD-2005-0008732

PATIENT
  Sex: Male

DRUGS (7)
  1. VIREAD [Suspect]
     Indication: HIV INFECTION
     Route: 048
     Dates: start: 20040816, end: 20050901
  2. VIDEX [Suspect]
     Indication: HIV INFECTION
     Route: 048
     Dates: start: 20050607, end: 20050901
  3. VIDEX [Suspect]
     Route: 048
     Dates: start: 20040816, end: 20050607
  4. EPIVIR [Suspect]
     Indication: HIV INFECTION
     Route: 048
     Dates: start: 20040816, end: 20050901
  5. PEGASYS [Suspect]
     Indication: HEPATITIS C
     Route: 058
     Dates: start: 20050627, end: 20050901
  6. COPEGUS [Suspect]
     Indication: HEPATITIS C
     Route: 048
     Dates: start: 20050627, end: 20050823
  7. COPEGUS [Suspect]
     Route: 048
     Dates: start: 20050823, end: 20050901

REACTIONS (7)
  - BACK PAIN [None]
  - GENERAL PHYSICAL HEALTH DETERIORATION [None]
  - HEPATIC CIRRHOSIS [None]
  - LACTIC ACIDOSIS [None]
  - MENINGITIS [None]
  - PYREXIA [None]
  - RENAL FAILURE [None]
